FAERS Safety Report 4620871-3 (Version None)
Quarter: 2005Q1

REPORT INFORMATION
  Report Type: 
  Country: None (occurrence: None)
  Receive Date: 20050325
  Receipt Date: 20050321
  Transmission Date: 20050727
  Serious: Yes (Hospitalization, Other)
  Sender: FDA-Public Use
  Company Number: FRWYE521621MAR05

PATIENT
  Age: 32 Year
  Sex: Male

DRUGS (11)
  1. OXAZEPAM [Suspect]
     Route: 048
  2. ARTANE [Suspect]
     Route: 048
     Dates: end: 20050121
  3. CLOPIXOL (ZUCLOPENTHIXOL DECANOATE) [Concomitant]
     Route: 042
     Dates: end: 20050117
  4. LOXAPAX (LOXAPINE) [Suspect]
     Route: 042
     Dates: end: 20050117
  5. RISPERDAL [Suspect]
     Route: 048
     Dates: end: 20050121
  6. TERCIAN (CYAMEMAZINE) [Concomitant]
     Route: 048
     Dates: end: 20050123
  7. NITRENDIPINE [Concomitant]
  8. BISOPROLOL FUMARATE [Concomitant]
  9. SULFARLEM (ANETHOLE TRITHIONE) [Concomitant]
  10. MACROGOL [Concomitant]
  11. STILNOX (ZOLPIDEM) [Concomitant]

REACTIONS (5)
  - BLOOD BICARBONATE DECREASED [None]
  - COGWHEEL RIGIDITY [None]
  - HYPERTONIA [None]
  - NEUROLEPTIC MALIGNANT SYNDROME [None]
  - URINARY RETENTION [None]
